FAERS Safety Report 8606834-1 (Version None)
Quarter: 2012Q3

REPORT INFORMATION
  Report Type: 
  Country: None (occurrence: None)
  Receive Date: 20120820
  Receipt Date: 20120809
  Transmission Date: 20120928
  Serious: Yes (Death, Other)
  Sender: FDA-Public Use
  Company Number: DE-ROCHE-448448

PATIENT
  Sex: Female
  Weight: 76.272 kg

DRUGS (8)
  1. BUDENOFALK [Concomitant]
     Route: 048
  2. CETUXIMAB AND CETUXIMAB [Suspect]
     Indication: COLORECTAL CANCER METASTATIC
     Dosage: FREQUENCY REPORTED AS DAY 1.
     Route: 042
  3. IRINOTECAN HYDROCHLORIDE [Suspect]
     Indication: COLORECTAL CANCER METASTATIC
     Dosage: FREQUENCY REPORTED AS DAY 1.
     Route: 042
  4. ZOFRAN [Concomitant]
     Dosage: TAJEN DAYS 1-3 ONLY
     Route: 048
  5. DEXAMETHASONE [Concomitant]
     Dosage: DAYS 1-3 ONLY
     Route: 048
  6. XELODA [Suspect]
     Indication: COLORECTAL CANCER METASTATIC
     Route: 048
  7. XELODA [Suspect]
     Dosage: DOSE: 3 PILLS IN AM AND 4 PILLS IN THE PM
     Route: 048
  8. MESALAMINE [Concomitant]
     Route: 048

REACTIONS (2)
  - PALMAR-PLANTAR ERYTHRODYSAESTHESIA SYNDROME [None]
  - RASH [None]
